FAERS Safety Report 22295381 (Version 2)
Quarter: 2023Q2

REPORT INFORMATION
  Report Type: Spontaneous
  Country: IN (occurrence: IN)
  Receive Date: 20230508
  Receipt Date: 20230613
  Transmission Date: 20230722
  Serious: Yes (Other)
  Sender: FDA-Public Use
  Company Number: IN-PFIZER INC-2018057892

PATIENT
  Age: 65 Year
  Sex: Female
  Weight: 60 kg

DRUGS (4)
  1. PALBOCICLIB [Suspect]
     Active Substance: PALBOCICLIB
     Indication: Breast cancer metastatic
     Dosage: ONCE DAILY, 21 DAYS ON - 7 DAYS OFF
     Route: 048
     Dates: start: 20170501, end: 20180122
  2. PALBOCICLIB [Suspect]
     Active Substance: PALBOCICLIB
     Dosage: ONCE DAILY, 21 DAYS ON - 7 DAYS OFF
     Route: 048
     Dates: end: 201903
  3. PALBOCICLIB [Suspect]
     Active Substance: PALBOCICLIB
     Dosage: ONCE DAILY, 21 DAYS ON - 7 DAYS OFF
     Route: 048
  4. LETROZOLE [Concomitant]
     Active Substance: LETROZOLE
     Indication: Breast cancer metastatic
     Dosage: 2.5 MG, 1X/DAY

REACTIONS (6)
  - Platelet count decreased [Unknown]
  - Blood thyroid stimulating hormone increased [Unknown]
  - Arthritis [Unknown]
  - Hypertension [Unknown]
  - Glycosylated haemoglobin increased [Unknown]
  - White blood cell count decreased [Unknown]
